FAERS Safety Report 8369659-0 (Version None)
Quarter: 2012Q1

REPORT INFORMATION
  Report Type: 
  Country: None (occurrence: None)
  Receive Date: 20120323
  Receipt Date: 20111116
  Transmission Date: 20120608
  Serious: Yes (Hospitalization, Other)
  Sender: FDA-Public Use
  Company Number: 163-21880-11112807

PATIENT
  Age: 71 Year
  Sex: Male

DRUGS (31)
  1. MELPHALAN HYDROCHLORIDE [Suspect]
     Indication: MULTIPLE MYELOMA
     Dosage: 14 MG, DAILY FOR 4 DAYS, PO
     Route: 048
     Dates: start: 20100625
  2. MELPHALAN HYDROCHLORIDE [Suspect]
     Indication: MULTIPLE MYELOMA
     Dosage: 14 MG, DAILY FOR 4 DAYS, PO
     Route: 048
     Dates: start: 20100423
  3. MELPHALAN HYDROCHLORIDE [Suspect]
     Indication: MULTIPLE MYELOMA
     Dosage: 14 MG, DAILY FOR 4 DAYS, PO
     Route: 048
     Dates: start: 20100501
  4. POTASSIUM CHLORIDE [Concomitant]
  5. MIRALAX [Concomitant]
  6. THIOCTIC ACID [Concomitant]
  7. PAMIDRONATE DISODIUM [Concomitant]
  8. ACYCLOVIR [Concomitant]
  9. KEFLEX [Concomitant]
  10. SENOKOT [Concomitant]
  11. SENNA-MINT WAF [Concomitant]
  12. MAGNESIUM OXIDE [Concomitant]
  13. FOLIC ACID [Concomitant]
  14. FUROSEMIDE [Concomitant]
  15. METOPROLOL [Concomitant]
  16. ALLOPURINOL [Concomitant]
  17. NEURONTIN [Concomitant]
  18. HALOPERIDOL [Concomitant]
  19. OXYCODONE HCL [Concomitant]
  20. AREDIA [Concomitant]
  21. PREDNISONE [Suspect]
     Indication: MULTIPLE MYELOMA
     Dosage: 5 MG, DAILY, PO
     Route: 048
     Dates: start: 20100501
  22. PREDNISONE [Suspect]
     Indication: MULTIPLE MYELOMA
     Dosage: 5 MG, DAILY, PO
     Route: 048
     Dates: start: 20100423
  23. WARFARIN SODIUM [Concomitant]
  24. ASPIRIN [Concomitant]
  25. PREVACID [Concomitant]
  26. DIFLUCAN [Concomitant]
  27. PYRIDOXINE HCL (PYRIDOXINE HYDROCHLORIDE) [Concomitant]
  28. COLACE (DOCUSATE SODIUM) [Concomitant]
  29. REVLIMID [Suspect]
     Indication: MULTIPLE MYELOMA
     Dosage: 10 MG, DAILY X 21 , PO : 10 MG, EVERY OTHER DAY, PO : 5 MG, PO
     Route: 048
     Dates: start: 20110316, end: 20110413
  30. REVLIMID [Suspect]
     Indication: MULTIPLE MYELOMA
     Dosage: 10 MG, DAILY X 21 , PO : 10 MG, EVERY OTHER DAY, PO : 5 MG, PO
     Route: 048
     Dates: start: 20100501
  31. CIPROFLOXACIN [Concomitant]

REACTIONS (2)
  - INFECTION [None]
  - FULL BLOOD COUNT DECREASED [None]
